FAERS Safety Report 19656628 (Version 1)
Quarter: 2021Q3

REPORT INFORMATION
  Report Type: Spontaneous
  Country: US (occurrence: US)
  Receive Date: 20210803
  Receipt Date: 20210803
  Transmission Date: 20211014
  Serious: Yes (Hospitalization)
  Sender: FDA-Public Use
  Company Number: None

PATIENT
  Age: 37 Year
  Sex: Female

DRUGS (2)
  1. HYDROMORPHON [Concomitant]
     Active Substance: HYDROMORPHONE
  2. DEFERASIROX. [Suspect]
     Active Substance: DEFERASIROX
     Indication: SICKLE CELL DISEASE
     Route: 048
     Dates: start: 20210501

REACTIONS (2)
  - Therapy interrupted [None]
  - Pain [None]

NARRATIVE: CASE EVENT DATE: 20210717
